FAERS Safety Report 10775942 (Version 1)
Quarter: 2015Q1

REPORT INFORMATION
  Report Type: Spontaneous
  Country: TR (occurrence: TR)
  Receive Date: 20150209
  Receipt Date: 20150209
  Transmission Date: 20150721
  Serious: Yes (Life-Threatening)
  Sender: FDA-Public Use
  Company Number: TR-BAYER-2015-014230

PATIENT
  Age: 30 Year
  Sex: Female

DRUGS (2)
  1. BETAMETHASONE [Concomitant]
     Active Substance: BETAMETHASONE
  2. NIFEDIPINE. [Suspect]
     Active Substance: NIFEDIPINE
     Indication: TOCOLYSIS
     Dosage: UNK

REACTIONS (8)
  - Premature delivery [None]
  - Mitral valve incompetence [Recovered/Resolved]
  - Acute respiratory failure [Recovered/Resolved]
  - Left ventricular dysfunction [Recovered/Resolved]
  - Product use issue [None]
  - Maternal exposure during pregnancy [None]
  - Peripartum cardiomyopathy [Recovered/Resolved]
  - Ejection fraction decreased [Recovered/Resolved]
